FAERS Safety Report 8973871 (Version 2)
Quarter: 2012Q4

REPORT INFORMATION
  Report Type: 
  Country: MA (occurrence: MA)
  Receive Date: 20121218
  Receipt Date: 20121221
  Transmission Date: 20130627
  Serious: Yes (Life-Threatening, Hospitalization, Disabling)
  Sender: FDA-Public Use
  Company Number: MA-ABBOTT-12P-110-1023157-00

PATIENT
  Sex: Female

DRUGS (2)
  1. HUMIRA [Suspect]
     Indication: RHEUMATOID ARTHRITIS
     Route: 058
     Dates: start: 20120901
  2. ETANERCEPT [Suspect]
     Indication: RHEUMATOID ARTHRITIS
     Dosage: 50 mg weekly
     Route: 058
     Dates: start: 20120301

REACTIONS (3)
  - Osteoarthritis [Not Recovered/Not Resolved]
  - Septic shock [Not Recovered/Not Resolved]
  - Abscess limb [Not Recovered/Not Resolved]
